FAERS Safety Report 7084139-0 (Version None)
Quarter: 2010Q4

REPORT INFORMATION
  Report Type: 
  Country: None (occurrence: None)
  Receive Date: 20101104
  Receipt Date: 20101015
  Transmission Date: 20110411
  Serious: Yes (Hospitalization)
  Sender: FDA-Public Use
  Company Number: US-BAYER-201019502NA

PATIENT
  Age: 40 Year
  Sex: Female
  Weight: 73 kg

DRUGS (3)
  1. YAZ [Suspect]
     Indication: MENORRHAGIA
     Route: 048
     Dates: start: 20070401, end: 20080601
  2. IBUPROFEN [Concomitant]
     Indication: HEADACHE
     Dosage: AS DIRECTED
     Dates: start: 20080620
  3. ZOLOFT [Concomitant]
     Indication: DEPRESSION
     Dosage: 25 MG/DAY
     Dates: start: 20060101, end: 20090101

REACTIONS (4)
  - CHEST PAIN [None]
  - DYSPNOEA [None]
  - NECK PAIN [None]
  - PULMONARY EMBOLISM [None]
